FAERS Safety Report 9384599 (Version 3)
Quarter: 2013Q3

REPORT INFORMATION
  Report Type: Spontaneous
  Country: CN (occurrence: None)
  Receive Date: 20130628
  Receipt Date: 20130816
  Transmission Date: 20140515
  Serious: Yes (Death, Hospitalization)
  Sender: FDA-Public Use
  Company Number: SYM-2013-05187

PATIENT
  Age: 55 Year
  Sex: Male

DRUGS (29)
  1. 5-FU [Suspect]
     Indication: COLORECTAL CANCER METASTATIC
     Route: 040
     Dates: start: 20130501, end: 20130501
  2. BLINDED THERAPY [Suspect]
     Indication: COLORECTAL CANCER METASTATIC
     Route: 042
     Dates: start: 20130501, end: 20130501
  3. IRINOTECAN [Suspect]
     Indication: COLORECTAL CANCER METASTATIC
     Route: 042
     Dates: start: 20130501, end: 20130501
  4. LEUCOVORIN (FOLINIC ACID) (SOLUTION FOR INFUSION) (FOLINIC ACID) [Suspect]
     Indication: COLORECTAL CANCER METASTATIC
     Route: 042
     Dates: start: 20130501, end: 20130501
  5. OXYCODONE HYDROCHLORIDE [Concomitant]
  6. ORNITHINE ASPARTATE [Concomitant]
  7. GLYCYRRHIZIC ACID [Concomitant]
  8. COENZYME A [Concomitant]
  9. HALOPERIDOL [Concomitant]
  10. AMINO ACIDS [Concomitant]
  11. FAT EMULSIONS [Concomitant]
  12. VITAMINS NOS [Concomitant]
  13. AMINIC [Concomitant]
  14. TROPISETRON HYDROCHLORIDE [Concomitant]
  15. LANSOPRAZOLE [Concomitant]
  16. LORAZEPAM [Concomitant]
  17. DIPHENHYDRAMINE HYDROCHLORIDE [Concomitant]
  18. LOPERAMIDE [Concomitant]
  19. OCTREOTIDE ACETATE [Concomitant]
  20. MINERAL SUPPLEMENTS [Concomitant]
  21. DEXAMETHASONE [Concomitant]
  22. POTASSIUM PHOSPHATE MONOBASIC [Concomitant]
  23. TRIGLYCERIDES [Concomitant]
  24. ALBUMIN [Concomitant]
  25. OCTREOTIDE [Concomitant]
  26. DIFENE (DICLOFENAC SODIUM) [Concomitant]
  27. SACCHAROMYCES BOULARDII [Concomitant]
  28. GLUTAMINE (LEVOGLUTAMIDE) [Concomitant]
  29. LEVOCARNITINE [Concomitant]

REACTIONS (15)
  - Diarrhoea [None]
  - Bone marrow failure [None]
  - Blood pressure increased [None]
  - Mood altered [None]
  - Hyperpyrexia [None]
  - Blood pressure decreased [None]
  - Hypoproteinaemia [None]
  - Hepatic function abnormal [None]
  - Abdominal distension [None]
  - Dysphoria [None]
  - General physical health deterioration [None]
  - Colorectal cancer metastatic [None]
  - Malignant neoplasm progression [None]
  - Leukopenia [None]
  - Neutropenia [None]
